FAERS Safety Report 19671311 (Version 2)
Quarter: 2022Q1

REPORT INFORMATION
  Report Type: Spontaneous
  Country: US (occurrence: US)
  Receive Date: 20210806
  Receipt Date: 20220326
  Transmission Date: 20220423
  Serious: Yes (Other)
  Sender: FDA-Public Use
  Company Number: US-TAKEDA-2021TUS048720

PATIENT

DRUGS (12)
  1. PROTONIX [Suspect]
     Active Substance: PANTOPRAZOLE SODIUM
     Indication: Gastrooesophageal reflux disease
     Dosage: 40 MILLIGRAM, QD
     Route: 048
  2. PREVACID [Suspect]
     Active Substance: LANSOPRAZOLE
     Indication: Gastrooesophageal reflux disease
     Dosage: UNK
     Route: 048
  3. PRILOSEC [Suspect]
     Active Substance: OMEPRAZOLE MAGNESIUM
     Indication: Gastrooesophageal reflux disease
     Dosage: 20 MILLIGRAM, QD
     Route: 048
  4. OMEPRAZOLE [Suspect]
     Active Substance: OMEPRAZOLE
     Indication: Gastrooesophageal reflux disease
     Dosage: 20 MILLIGRAM, QD
     Route: 048
  5. OMEPRAZOLE MAGNESIUM [Suspect]
     Active Substance: OMEPRAZOLE MAGNESIUM
     Indication: Gastrooesophageal reflux disease
     Dosage: UNK
     Route: 048
  6. PIROXICAM [Concomitant]
     Active Substance: PIROXICAM
  7. CARBAMAZEPINE [Concomitant]
     Active Substance: CARBAMAZEPINE
  8. LISINOPRIL [Concomitant]
     Active Substance: LISINOPRIL
  9. ROCEPHIN [Concomitant]
     Active Substance: CEFTRIAXONE SODIUM
  10. TYLENOL [Concomitant]
     Active Substance: ACETAMINOPHEN
  11. RANITIDINE [Concomitant]
     Active Substance: RANITIDINE
  12. AMITRIPTYLINE [Concomitant]
     Active Substance: AMITRIPTYLINE

REACTIONS (1)
  - Acute kidney injury [Not Recovered/Not Resolved]
